FAERS Safety Report 5002976-0 (Version None)
Quarter: 2006Q2

REPORT INFORMATION
  Report Type: 
  Country: None (occurrence: None)
  Receive Date: 20060516
  Receipt Date: 20051108
  Transmission Date: 20061013
  Serious: Yes (Hospitalization, Disabling)
  Sender: FDA-Public Use
  Company Number: US-MERCK-0511USA01603

PATIENT
  Age: 62 Year
  Sex: Male
  Weight: 109 kg

DRUGS (3)
  1. VIOXX [Suspect]
     Indication: ARTHRITIS
     Route: 048
     Dates: start: 20031101, end: 20040801
  2. VIOXX [Suspect]
     Indication: ARTHRALGIA
     Route: 048
     Dates: start: 20031101, end: 20040801
  3. TYLENOL (CAPLET) [Concomitant]
     Route: 065

REACTIONS (7)
  - ARTHROPATHY [None]
  - CARDIOVASCULAR DISORDER [None]
  - CORONARY ARTERY OCCLUSION [None]
  - MUSCLE RUPTURE [None]
  - MYOCARDIAL INFARCTION [None]
  - ROTATOR CUFF REPAIR [None]
  - SINUS DISORDER [None]
